FAERS Safety Report 7079532-6 (Version None)
Quarter: 2010Q4

REPORT INFORMATION
  Report Type: 
  Country: None (occurrence: None)
  Receive Date: 20101102
  Receipt Date: 20101028
  Transmission Date: 20110411
  Serious: Yes (Other)
  Sender: FDA-Public Use
  Company Number: JP-B.I. PHARMACEUTICALS,INC./RIDGEFIELD-2010-BP-12115NB

PATIENT
  Sex: Male

DRUGS (5)
  1. MICOMBI COMBINATION [Suspect]
     Indication: HYPERTENSION
     Route: 048
  2. VESICARE [Suspect]
     Dosage: 5 MG
     Route: 048
  3. URINORM [Concomitant]
  4. NORVASC [Concomitant]
     Dosage: 5 MG
     Route: 048
  5. UNKNOWN/URINARY ALKALINIZATION DRUG [Concomitant]

REACTIONS (1)
  - URINARY RETENTION [None]
